FAERS Safety Report 23509651 (Version 1)
Quarter: 2024Q1

REPORT INFORMATION
  Report Type: Spontaneous
  Country: CN (occurrence: CN)
  Receive Date: 20240210
  Receipt Date: 20240210
  Transmission Date: 20240410
  Serious: Yes (Other)
  Sender: FDA-Public Use
  Company Number: CN-JNJFOC-20240205983

PATIENT
  Age: 33 Year
  Sex: Male
  Weight: 80 kg

DRUGS (4)
  1. SPORANOX [Suspect]
     Active Substance: ITRACONAZOLE
     Indication: Fungal infection
     Route: 048
     Dates: start: 20240120, end: 20240126
  2. CLOBETASOL PROPIONATE\KETOCONAZOLE [Suspect]
     Active Substance: CLOBETASOL PROPIONATE\KETOCONAZOLE
     Indication: Seborrhoeic dermatitis
     Route: 061
  3. AMMONIUM GLYCYRRHIZATE\CYSTEINE HYDROCHLORIDE\GLYCINE [Concomitant]
     Active Substance: AMMONIUM GLYCYRRHIZATE\CYSTEINE HYDROCHLORIDE\GLYCINE
     Indication: Seborrhoeic dermatitis
     Dosage: 2 CAPSULES
     Route: 048
     Dates: start: 20240120, end: 20240126
  4. VITAMIN B COMPLEX [Concomitant]
     Active Substance: CYANOCOBALAMIN\DEXPANTHENOL\NIACINAMIDE\PYRIDOXINE HYDROCHLORIDE\RIBOFLAVIN 5^-PHOSPHATE SODIUM\THIA
     Route: 048

REACTIONS (3)
  - Pruritus [Recovering/Resolving]
  - Dry skin [Recovered/Resolved]
  - Swelling [Recovering/Resolving]

NARRATIVE: CASE EVENT DATE: 20240123
